FAERS Safety Report 18392798 (Version 1)
Quarter: 2020Q4

REPORT INFORMATION
  Report Type: Spontaneous
  Country: US (occurrence: US)
  Receive Date: 20201016
  Receipt Date: 20201016
  Transmission Date: 20210114
  Serious: No
  Sender: FDA-Public Use
  Company Number: US-MYLANLABS-2020M1086184

PATIENT
  Sex: Female
  Weight: 39 kg

DRUGS (1)
  1. XULANE [Suspect]
     Active Substance: ETHINYL ESTRADIOL\NORELGESTROMIN
     Indication: CONTRACEPTION
     Dosage: QW (150/35 MCG) (ONE PATCH WEEKLY FOR 3 WEEKS AND 1 WEEK OFF)
     Route: 062

REACTIONS (1)
  - Muscle spasms [Not Recovered/Not Resolved]
